FAERS Safety Report 4732889-0 (Version None)
Quarter: 2005Q3

REPORT INFORMATION
  Report Type: 
  Country: None (occurrence: None)
  Receive Date: 20050803
  Receipt Date: 20050428
  Transmission Date: 20060218
  Serious: No
  Sender: FDA-Public Use
  Company Number: US-GLAXOSMITHKLINE-A0556205A

PATIENT
  Age: 66 Year
  Sex: Female

DRUGS (5)
  1. AVANDAMET [Suspect]
     Dosage: 1TAB TWICE PER DAY
     Route: 048
     Dates: start: 20050419
  2. ACCUPRIL [Concomitant]
  3. LIPITOR [Concomitant]
  4. METOPROLOL [Concomitant]
  5. INSULIN HUMAN NPH 70% REGULAR 30% [Concomitant]

REACTIONS (2)
  - OCULAR HYPERAEMIA [None]
  - VISUAL DISTURBANCE [None]
